FAERS Safety Report 23667847 (Version 1)
Quarter: 2024Q1

REPORT INFORMATION
  Report Type: Spontaneous
  Country: CN (occurrence: CN)
  Receive Date: 20240325
  Receipt Date: 20240325
  Transmission Date: 20240410
  Serious: Yes (Life-Threatening, Hospitalization)
  Sender: FDA-Public Use
  Company Number: CN-STRIDES ARCOLAB LIMITED-2024SP003378

PATIENT
  Age: 77 Year
  Sex: Female

DRUGS (8)
  1. DOXYCYCLINE [Suspect]
     Active Substance: DOXYCYCLINE
     Indication: Pneumonia chlamydial
     Dosage: UNK
     Route: 065
     Dates: start: 20221014, end: 202210
  2. DOXYCYCLINE [Suspect]
     Active Substance: DOXYCYCLINE
     Dosage: 0.1 GRAM, EVERY 12 HRS
     Route: 048
     Dates: start: 20221031
  3. PIPERACILLIN SODIUM\TAZOBACTAM SODIUM [Suspect]
     Active Substance: PIPERACILLIN SODIUM\TAZOBACTAM SODIUM
     Indication: Pneumonia chlamydial
     Dosage: UNK
     Route: 065
     Dates: start: 20221014, end: 202210
  4. MOXIFLOXACIN [Suspect]
     Active Substance: MOXIFLOXACIN
     Indication: Pneumonia chlamydial
     Dosage: UNK
     Route: 065
     Dates: start: 20221012, end: 202210
  5. MEROPENEM [Suspect]
     Active Substance: MEROPENEM
     Indication: Pneumonia chlamydial
     Dosage: UNK
     Route: 065
     Dates: start: 20221012, end: 202210
  6. NIMODIPINE [Concomitant]
     Active Substance: NIMODIPINE
     Indication: Cerebral vasoconstriction
     Dosage: UNK
     Route: 065
     Dates: start: 20221012
  7. NUZYRA [Concomitant]
     Active Substance: OMADACYCLINE
     Indication: Pneumonia chlamydial
     Dosage: 200 MILLIGRAM PER DAY
     Route: 042
     Dates: start: 202210
  8. NUZYRA [Concomitant]
     Active Substance: OMADACYCLINE
     Dosage: 100 MILLIGRAM PER DAY
     Route: 042
     Dates: end: 20221031

REACTIONS (2)
  - Drug ineffective [Unknown]
  - Condition aggravated [Unknown]

NARRATIVE: CASE EVENT DATE: 20221001
